FAERS Safety Report 7865563-2 (Version None)
Quarter: 2011Q4

REPORT INFORMATION
  Report Type: 
  Country: None (occurrence: None)
  Receive Date: 20111028
  Receipt Date: 20110117
  Transmission Date: 20120403
  Serious: No
  Sender: FDA-Public Use
  Company Number: US-GLAXOSMITHKLINE-A0906513A

PATIENT
  Age: 83 Year
  Sex: Male

DRUGS (10)
  1. FLOMAX [Concomitant]
  2. LOVASTATIN [Concomitant]
  3. NEURONTIN [Concomitant]
  4. ADVAIR DISKUS 100/50 [Suspect]
     Indication: CHRONIC OBSTRUCTIVE PULMONARY DISEASE
     Dosage: 1PUFF TWICE PER DAY
     Route: 055
  5. ASPIRIN [Concomitant]
  6. BYSTOLIC [Concomitant]
  7. ALLOPURINOL [Concomitant]
  8. ALBUTEROL [Concomitant]
     Route: 055
  9. SPIRIVA [Concomitant]
  10. PROSCAR [Concomitant]

REACTIONS (1)
  - WEIGHT INCREASED [None]
